FAERS Safety Report 17978515 (Version 1)
Quarter: 2020Q3

REPORT INFORMATION
  Report Type: Spontaneous
  Country: US (occurrence: US)
  Receive Date: 20200703
  Receipt Date: 20200703
  Transmission Date: 20201103
  Serious: Yes (Hospitalization, Other)
  Sender: FDA-Public Use
  Company Number: US-MICRO LABS LIMITED-ML2020-01919

PATIENT
  Age: 71 Year
  Sex: Female

DRUGS (1)
  1. TRANEXAMIC ACID. [Suspect]
     Active Substance: TRANEXAMIC ACID
     Route: 037

REACTIONS (4)
  - Medication error [Recovered/Resolved]
  - Wrong product administered [Recovered/Resolved]
  - Status epilepticus [Recovered/Resolved]
  - Myoclonus [Recovered/Resolved]
